FAERS Safety Report 11930606 (Version 3)
Quarter: 2016Q1

REPORT INFORMATION
  Report Type: Spontaneous
  Country: US (occurrence: US)
  Receive Date: 20160120
  Receipt Date: 20160203
  Transmission Date: 20160526
  Serious: Yes (Other)
  Sender: FDA-Public Use
  Company Number: US-JNJFOC-20160111235

PATIENT
  Sex: Female

DRUGS (2)
  1. SIMPONI [Suspect]
     Active Substance: GOLIMUMAB
     Indication: PRODUCT USED FOR UNKNOWN INDICATION
     Route: 058
  2. XELJANZ [Suspect]
     Active Substance: TOFACITINIB CITRATE
     Indication: PRODUCT USED FOR UNKNOWN INDICATION
     Route: 065

REACTIONS (10)
  - Arthropathy [Unknown]
  - Paraesthesia [Unknown]
  - Oedema peripheral [Unknown]
  - Cardiovascular disorder [Recovered/Resolved]
  - Therapeutic response decreased [Unknown]
  - Knee arthroplasty [Unknown]
  - Abasia [Unknown]
  - Akathisia [Recovering/Resolving]
  - Insomnia [Unknown]
  - Pain [Unknown]
